APPROVED DRUG PRODUCT: CALCITRIOL
Active Ingredient: CALCITRIOL
Strength: 1MCG/ML
Dosage Form/Route: SOLUTION;ORAL
Application: A209798 | Product #001 | TE Code: AA
Applicant: RISING PHARMA HOLDINGS INC
Approved: Nov 21, 2018 | RLD: No | RS: No | Type: RX